FAERS Safety Report 8116471-3 (Version None)
Quarter: 2012Q1

REPORT INFORMATION
  Report Type: 
  Country: None (occurrence: None)
  Receive Date: 20120206
  Receipt Date: 20120127
  Transmission Date: 20120608
  Serious: Yes (Other)
  Sender: FDA-Public Use
  Company Number: US-NOVOPROD-344048

PATIENT
  Age: 14 Year
  Sex: Male
  Weight: 58.322 kg

DRUGS (2)
  1. NORDITROPIN FLEXPRO [Suspect]
     Indication: BODY HEIGHT BELOW NORMAL
     Dosage: 4.4 MG, QD
     Route: 058
     Dates: start: 20100625
  2. ARIMIDEX [Concomitant]
     Indication: BODY HEIGHT BELOW NORMAL
     Dosage: UNK
     Route: 048

REACTIONS (3)
  - RADIUS FRACTURE [None]
  - ULNA FRACTURE [None]
  - HEADACHE [None]
